FAERS Safety Report 8285611-8 (Version None)
Quarter: 2012Q2

REPORT INFORMATION
  Report Type: 
  Country: None (occurrence: None)
  Receive Date: 20120413
  Receipt Date: 20111206
  Transmission Date: 20120825
  Serious: No
  Sender: FDA-Public Use
  Company Number: US-ASTRAZENECA-2010SE47945

PATIENT
  Age: 65 Year
  Sex: Female
  Weight: 77.1 kg

DRUGS (5)
  1. SEROQUEL [Suspect]
     Route: 048
  2. NEXIUM [Suspect]
     Route: 048
     Dates: start: 19970101
  3. TOPROL-XL [Suspect]
     Route: 048
  4. SEROQUEL [Suspect]
     Indication: BIPOLAR DISORDER
     Route: 048
     Dates: start: 19970101, end: 20090101
  5. SEROQUEL [Suspect]
     Route: 048
     Dates: start: 20090101

REACTIONS (6)
  - NECK PAIN [None]
  - AMNESIA [None]
  - SPOUSAL ABUSE [None]
  - BACK PAIN [None]
  - HEAD INJURY [None]
  - MEMORY IMPAIRMENT [None]
